FAERS Safety Report 5227228-5 (Version None)
Quarter: 2007Q1

REPORT INFORMATION
  Report Type: 
  Country: None (occurrence: None)
  Receive Date: 20070202
  Receipt Date: 20070125
  Transmission Date: 20070707
  Serious: Yes (Hospitalization)
  Sender: FDA-Public Use
  Company Number: CH-GLAXOSMITHKLINE-B0456497A

PATIENT
  Sex: Female

DRUGS (6)
  1. LAMICTAL [Suspect]
     Indication: MAJOR DEPRESSION
     Route: 048
     Dates: start: 20060804, end: 20060827
  2. BLOPRESS [Concomitant]
     Indication: HYPERTENSION
     Dosage: 16MG PER DAY
     Route: 048
     Dates: start: 20060228, end: 20061106
  3. LORAZEPAM [Concomitant]
     Dosage: 1.5MG PER DAY
     Route: 048
     Dates: start: 20060821, end: 20060920
  4. OLANZAPINE [Concomitant]
     Dosage: 5MG PER DAY
     Route: 048
     Dates: start: 20060818, end: 20061106
  5. MIRTAZAPINE [Concomitant]
     Dosage: 30MG PER DAY
     Route: 048
     Dates: start: 20060327, end: 20061106
  6. VENLAFAXINE HCL [Concomitant]
     Dosage: 375MG PER DAY
     Route: 048
     Dates: start: 20060712, end: 20061005

REACTIONS (4)
  - DERMATITIS ALLERGIC [None]
  - ECZEMA INFECTED [None]
  - RASH [None]
  - RASH PUSTULAR [None]
